FAERS Safety Report 16636556 (Version 2)
Quarter: 2019Q3

REPORT INFORMATION
  Report Type: Spontaneous
  Country: US (occurrence: US)
  Receive Date: 20190726
  Receipt Date: 20190729
  Transmission Date: 20191004
  Serious: Yes (Hospitalization, Other)
  Sender: FDA-Public Use
  Company Number: US-009507513-1907USA014324

PATIENT
  Age: 72 Year
  Sex: Male

DRUGS (6)
  1. ENALAPRIL [Concomitant]
     Active Substance: ENALAPRIL
     Dosage: UNK
  2. JANUVIA [Suspect]
     Active Substance: SITAGLIPTIN PHOSPHATE
     Indication: DIABETES MELLITUS
     Dosage: 100 MG, 1 TABLET BY MOUTH DAILY
     Route: 048
     Dates: end: 201901
  3. GLIPIZIDE. [Concomitant]
     Active Substance: GLIPIZIDE
     Dosage: UNK
  4. METFORMIN [Concomitant]
     Active Substance: METFORMIN HYDROCHLORIDE
     Dosage: UNK
  5. JANUVIA [Suspect]
     Active Substance: SITAGLIPTIN PHOSPHATE
     Dosage: 100 MG, 1 TABLET BY MOUTH DAILY
     Route: 048
     Dates: start: 20190719, end: 20190720
  6. SIMVASTATIN. [Concomitant]
     Active Substance: SIMVASTATIN
     Dosage: UNK

REACTIONS (4)
  - Blood glucose increased [Not Recovered/Not Resolved]
  - Product dose omission [Unknown]
  - Circumstance or information capable of leading to medication error [Unknown]
  - Gangrene [Not Recovered/Not Resolved]

NARRATIVE: CASE EVENT DATE: 2019
